FAERS Safety Report 21075792 (Version 1)
Quarter: 2022Q3

REPORT INFORMATION
  Report Type: Spontaneous
  Country: US (occurrence: None)
  Receive Date: 20220712
  Receipt Date: 20220712
  Transmission Date: 20221027
  Serious: No
  Sender: FDA-Public Use
  Company Number: None

PATIENT
  Age: 64 Year
  Sex: Female
  Weight: 74.25 kg

DRUGS (3)
  1. CYCLOSPORINE [Suspect]
     Active Substance: CYCLOSPORINE
     Indication: Dry eye
     Dosage: FREQUENCY : TWICE A DAY;?
     Route: 047
     Dates: start: 20220630, end: 20220701
  2. VITAMINS [Concomitant]
     Active Substance: VITAMINS
  3. VITAMIN D [Concomitant]
     Active Substance: VITAMIN D NOS

REACTIONS (6)
  - Ocular hyperaemia [None]
  - Eye irritation [None]
  - Eye swelling [None]
  - Abnormal sensation in eye [None]
  - Vision blurred [None]
  - Product substitution issue [None]

NARRATIVE: CASE EVENT DATE: 20220630
